FAERS Safety Report 7928267-3 (Version None)
Quarter: 2011Q4

REPORT INFORMATION
  Report Type: 
  Country: None (occurrence: None)
  Receive Date: 20111118
  Receipt Date: 20111109
  Transmission Date: 20120403
  Serious: Yes (Hospitalization, Disabling, Other)
  Sender: FDA-Public Use
  Company Number: US-MERCK-1103USA03938

PATIENT
  Age: 56 Year
  Sex: Female
  Weight: 80 kg

DRUGS (6)
  1. FOSAMAX [Suspect]
     Indication: OSTEOPOROSIS
     Route: 048
     Dates: start: 20021201, end: 20080101
  2. FOSAMAX PLUS D [Suspect]
     Indication: OSTEOPOROSIS
     Route: 048
     Dates: start: 20070201, end: 20101001
  3. ALENDRONATE SODIUM [Suspect]
     Route: 065
     Dates: start: 20090901, end: 20100101
  4. INSULIN [Concomitant]
     Indication: DIABETES MELLITUS
     Route: 065
     Dates: start: 19930101
  5. BONIVA [Suspect]
     Indication: OSTEOPOROSIS
     Route: 065
     Dates: start: 20080101, end: 20100101
  6. ALENDRONATE SODIUM [Suspect]
     Route: 065
     Dates: start: 20100301, end: 20100601

REACTIONS (40)
  - LOW TURNOVER OSTEOPATHY [None]
  - POST-TRAUMATIC NECK SYNDROME [None]
  - CORONARY ARTERY DISEASE [None]
  - ISCHAEMIA [None]
  - SCIATICA [None]
  - NEUROPATHY PERIPHERAL [None]
  - BLOOD CREATINE PHOSPHOKINASE INCREASED [None]
  - CARPAL TUNNEL SYNDROME [None]
  - CEREBRAL SMALL VESSEL ISCHAEMIC DISEASE [None]
  - HAEMORRHAGE INTRACRANIAL [None]
  - PERIARTHRITIS [None]
  - GAIT DISTURBANCE [None]
  - FEMALE STERILISATION [None]
  - BURSITIS [None]
  - RHEUMATOID FACTOR INCREASED [None]
  - HAEMORRHOIDS [None]
  - HEAD INJURY [None]
  - DIABETIC RETINOPATHY [None]
  - BLOOD CHOLESTEROL INCREASED [None]
  - ANXIETY [None]
  - OSTEOPOROSIS [None]
  - LOCALISED OEDEMA [None]
  - FOOT FRACTURE [None]
  - VITREOUS HAEMORRHAGE [None]
  - STRESS FRACTURE [None]
  - VITAMIN D DEFICIENCY [None]
  - HAEMATURIA [None]
  - DEPRESSION [None]
  - HYPERTENSION [None]
  - DIZZINESS [None]
  - ROAD TRAFFIC ACCIDENT [None]
  - CATARACT [None]
  - HYPERPARATHYROIDISM [None]
  - MACULAR OEDEMA [None]
  - FEMUR FRACTURE [None]
  - FALL [None]
  - DEAFNESS BILATERAL [None]
  - OSTEOARTHRITIS [None]
  - HYPERLIPIDAEMIA [None]
  - HERPES ZOSTER [None]
